FAERS Safety Report 8423474-8 (Version None)
Quarter: 2012Q2

REPORT INFORMATION
  Report Type: 
  Country: None (occurrence: None)
  Receive Date: 20120608
  Receipt Date: 20120530
  Transmission Date: 20120825
  Serious: Yes (Other)
  Sender: FDA-Public Use
  Company Number: FR-ELI_LILLY_AND_COMPANY-FR201203007797

PATIENT
  Age: 61 Year
  Sex: Male
  Weight: 120 kg

DRUGS (5)
  1. DIVARIUS [Concomitant]
     Dosage: 1 DF, QD
     Route: 048
  2. CIALIS [Suspect]
     Dosage: 5 MG, QD
     Route: 048
     Dates: start: 20120319, end: 20120324
  3. SURGAM [Concomitant]
     Indication: NASOPHARYNGITIS
  4. ASPIRIN [Concomitant]
     Dosage: UNK, UNKNOWN
     Route: 065
  5. CIALIS [Suspect]
     Indication: ERECTILE DYSFUNCTION
     Dosage: 20 MG, UNK
     Route: 048

REACTIONS (4)
  - AMNESIA [None]
  - MUSCLE DISORDER [None]
  - INCORRECT DOSE ADMINISTERED [None]
  - FLUSHING [None]
